FAERS Safety Report 7437905-3 (Version None)
Quarter: 2011Q2

REPORT INFORMATION
  Report Type: 
  Country: None (occurrence: None)
  Receive Date: 20110426
  Receipt Date: 20110418
  Transmission Date: 20111010
  Serious: Yes (Other)
  Sender: FDA-Public Use
  Company Number: B0714616A

PATIENT
  Sex: Female

DRUGS (2)
  1. BESTRON [Concomitant]
     Route: 031
  2. ZOVIRAX [Suspect]
     Route: 031
     Dates: start: 20110413, end: 20110415

REACTIONS (1)
  - APPLICATION SITE EROSION [None]
